FAERS Safety Report 9869236 (Version 1)
Quarter: 2014Q1

REPORT INFORMATION
  Report Type: Spontaneous
  Country: FR (occurrence: FR)
  Receive Date: 20140205
  Receipt Date: 20140205
  Transmission Date: 20141002
  Serious: Yes (Hospitalization)
  Sender: FDA-Public Use
  Company Number: FR-JNJFOC-20140200360

PATIENT
  Age: 61 Year
  Sex: Female

DRUGS (4)
  1. IXPRIM [Suspect]
     Indication: MUSCLE RUPTURE
     Route: 048
     Dates: start: 20131224, end: 20131229
  2. PIROXICAM BETADEX [Suspect]
     Indication: MUSCLE RUPTURE
     Route: 048
     Dates: start: 20131224, end: 20131229
  3. METFORMINE [Suspect]
     Indication: TYPE 2 DIABETES MELLITUS
     Route: 048
     Dates: end: 20140107
  4. DIOSMIN [Suspect]
     Indication: MUSCLE RUPTURE
     Route: 048
     Dates: start: 20131224, end: 20131229

REACTIONS (2)
  - Abdominal pain upper [Recovering/Resolving]
  - Lipase increased [Recovering/Resolving]
